FAERS Safety Report 13088613 (Version 1)
Quarter: 2016Q4

REPORT INFORMATION
  Report Type: Spontaneous
  Country: US (occurrence: US)
  Receive Date: 20161230
  Receipt Date: 20161230
  Transmission Date: 20170207
  Serious: Yes (Other)
  Sender: FDA-Public Use
  Company Number: None

PATIENT
  Age: 52 Year
  Sex: Male
  Weight: 81 kg

DRUGS (6)
  1. CETIRIZINE [Suspect]
     Active Substance: CETIRIZINE HYDROCHLORIDE
     Indication: MULTIPLE ALLERGIES
     Dates: start: 20140202, end: 20161220
  2. FLONASE [Concomitant]
     Active Substance: FLUTICASONE PROPIONATE
  3. CPAP [Concomitant]
     Active Substance: DEVICE
  4. PROBIOTIC [Concomitant]
     Active Substance: PROBIOTICS NOS
  5. VITAMIN D [Concomitant]
     Active Substance: CHOLECALCIFEROL
  6. NIACIN. [Concomitant]
     Active Substance: NIACIN

REACTIONS (3)
  - Pruritus generalised [None]
  - Therapy cessation [None]
  - Withdrawal syndrome [None]

NARRATIVE: CASE EVENT DATE: 20161229
